FAERS Safety Report 7748606-6 (Version None)
Quarter: 2011Q3

REPORT INFORMATION
  Report Type: 
  Country: None (occurrence: None)
  Receive Date: 20110914
  Receipt Date: 20110906
  Transmission Date: 20111222
  Serious: No
  Sender: FDA-Public Use
  Company Number: US-BIOGENIDEC-2011BI034395

PATIENT
  Age: 26 Year
  Sex: Female

DRUGS (4)
  1. KEPPRA [Concomitant]
     Indication: EPILEPSY
  2. PROGESTIN INJ [Concomitant]
     Indication: CONTRACEPTION
  3. TYSABRI [Suspect]
     Indication: MULTIPLE SCLEROSIS
     Route: 042
     Dates: start: 20100728
  4. ZONEGRAN [Concomitant]
     Indication: EPILEPSY

REACTIONS (4)
  - STRESS [None]
  - MIGRAINE [None]
  - AMENORRHOEA [None]
  - ANTICONVULSANT DRUG LEVEL INCREASED [None]
